FAERS Safety Report 4994091-7 (Version None)
Quarter: 2006Q2

REPORT INFORMATION
  Report Type: 
  Country: None (occurrence: None)
  Receive Date: 20060503
  Receipt Date: 20060424
  Transmission Date: 20061013
  Serious: Yes (Life-Threatening, Other)
  Sender: FDA-Public Use
  Company Number: 2006US000827

PATIENT
  Age: 56 Year
  Sex: Male
  Weight: 60 kg

DRUGS (11)
  1. ADENOSCAN [Suspect]
     Indication: SCAN MYOCARDIAL PERFUSION
     Dosage: 20 MG, IV NOS
     Route: 042
     Dates: start: 20060412, end: 20060412
  2. NICORANDIL (NICORANDIL) [Concomitant]
  3. CARVEDILOL [Concomitant]
  4. FAMOTIDINE [Concomitant]
  5. ENALAPRIL MALEATE [Concomitant]
  6. AMLODIPINE BESYLATE [Concomitant]
  7. ASPIRIN [Concomitant]
  8. AMIODARONE HCL [Concomitant]
  9. SPIRONOLACTONE [Concomitant]
  10. FUROSEMIDE (FUROSEMIDE SODIUM) [Concomitant]
  11. WARFARIN SODIUM [Concomitant]

REACTIONS (5)
  - ELECTROCARDIOGRAM ST SEGMENT ELEVATION [None]
  - LOSS OF CONSCIOUSNESS [None]
  - MYOCARDIAL ISCHAEMIA [None]
  - VENTRICULAR FIBRILLATION [None]
  - VENTRICULAR TACHYCARDIA [None]
